FAERS Safety Report 4621126-3 (Version None)
Quarter: 2005Q1

REPORT INFORMATION
  Report Type: 
  Country: None (occurrence: None)
  Receive Date: 20050328
  Receipt Date: 20050311
  Transmission Date: 20050727
  Serious: Yes (Hospitalization)
  Sender: FDA-Public Use
  Company Number: AWBNIASPAND2004-54

PATIENT
  Age: 51 Year
  Sex: Male

DRUGS (5)
  1. NIASPAN [Suspect]
     Indication: DYSLIPIDAEMIA
     Dosage: 500 MG  PO
     Route: 048
     Dates: start: 20041001, end: 20041001
  2. ATORVASTATIN CALCIUM [Concomitant]
  3. METOPROLOL SUCCINATE [Concomitant]
  4. ACETYL SALICYLIC ACID USP BAT [Concomitant]
  5. LISINOPRIL [Concomitant]

REACTIONS (1)
  - BURNING SENSATION [None]
